FAERS Safety Report 6368761-2 (Version None)
Quarter: 2009Q3

REPORT INFORMATION
  Report Type: 
  Country: None (occurrence: None)
  Receive Date: 20090922
  Receipt Date: 20090915
  Transmission Date: 20100115
  Serious: Yes (Hospitalization)
  Sender: FDA-Public Use
  Company Number: FR-MERCK-0909USA02464

PATIENT
  Age: 56 Year
  Sex: Male

DRUGS (2)
  1. ZOCOR [Suspect]
     Indication: HYPERTRIGLYCERIDAEMIA
     Route: 048
     Dates: start: 19970101, end: 20090501
  2. ZOCOR [Suspect]
     Route: 048
     Dates: start: 20090515, end: 20090701

REACTIONS (3)
  - EOSINOPHILIA [None]
  - JOINT SWELLING [None]
  - PRURITUS [None]
